FAERS Safety Report 7919577-4 (Version None)
Quarter: 2011Q4

REPORT INFORMATION
  Report Type: 
  Country: None (occurrence: None)
  Receive Date: 20111116
  Receipt Date: 20111116
  Transmission Date: 20120403
  Serious: Yes (Hospitalization)
  Sender: FDA-Public Use
  Company Number: None

PATIENT
  Age: 84 Year
  Sex: Female
  Weight: 102.1 kg

DRUGS (9)
  1. METOLAZONE [Concomitant]
  2. FERROUS SULFATE TAB [Concomitant]
  3. CRESTOR [Concomitant]
  4. BUMAX [Concomitant]
  5. CARVEDILOL [Concomitant]
  6. TRAZODONE HCL [Concomitant]
  7. HYDROCODONE BITARTRATE AND ACETAMINOPHEN [Concomitant]
  8. COUMADIN [Suspect]
     Indication: ATRIAL FIBRILLATION
     Dosage: 5 MG DAILY PO CHRONIC
     Route: 048
  9. HALDOL [Concomitant]

REACTIONS (5)
  - COAGULOPATHY [None]
  - HAEMATOCHEZIA [None]
  - RENAL FAILURE ACUTE [None]
  - FAECALOMA [None]
  - LARGE INTESTINAL ULCER [None]
